FAERS Safety Report 22207278 (Version 4)
Quarter: 2023Q4

REPORT INFORMATION
  Report Type: Spontaneous
  Country: US (occurrence: US)
  Receive Date: 20230413
  Receipt Date: 20231017
  Transmission Date: 20240110
  Serious: Yes (Other)
  Sender: FDA-Public Use
  Company Number: US-PFIZER INC-PV202300066177

PATIENT
  Age: 74 Year
  Sex: Female

DRUGS (3)
  1. IBRANCE [Suspect]
     Active Substance: PALBOCICLIB
     Indication: Breast cancer metastatic
     Dosage: 125 MG
     Dates: start: 20190325
  2. IBRANCE [Suspect]
     Active Substance: PALBOCICLIB
     Dosage: 100 MG, CYCLIC (TAKE ON DAYS 1 THRU 21 OF EACH 28 DAY CYCLE)
     Route: 048
  3. IBRANCE [Suspect]
     Active Substance: PALBOCICLIB
     Dosage: 100 MG

REACTIONS (11)
  - Acute myocardial infarction [Unknown]
  - Immunodeficiency [Unknown]
  - Electrolyte depletion [Unknown]
  - Oedema peripheral [Unknown]
  - Hyperkeratosis [Unknown]
  - Tinea pedis [Unknown]
  - Varicose vein [Unknown]
  - Excessive cerumen production [Unknown]
  - Type IIa hyperlipidaemia [Unknown]
  - Vitamin D deficiency [Unknown]
  - Back pain [Unknown]

NARRATIVE: CASE EVENT DATE: 20190325
